FAERS Safety Report 7995270-7 (Version None)
Quarter: 2011Q4

REPORT INFORMATION
  Report Type: 
  Country: None (occurrence: None)
  Receive Date: 20111220
  Receipt Date: 20111220
  Transmission Date: 20120403
  Serious: Yes (Hospitalization, Disabling, Other)
  Sender: FDA-Public Use
  Company Number: None

PATIENT
  Sex: Female
  Weight: 3.1751 kg

DRUGS (1)
  1. PROZAC [Suspect]
     Indication: DEPRESSION
     Dosage: LIKELY 20 MG.
     Route: 048
     Dates: start: 20040601, end: 20071201

REACTIONS (5)
  - NEONATAL ASPIRATION [None]
  - BODY HEIGHT BELOW NORMAL [None]
  - CONGENITAL PULMONARY HYPERTENSION [None]
  - MATERNAL DRUGS AFFECTING FOETUS [None]
  - CAESAREAN SECTION [None]
